FAERS Safety Report 13194699 (Version 1)
Quarter: 2017Q1

REPORT INFORMATION
  Report Type: Report from Study
  Country: US (occurrence: US)
  Receive Date: 20170207
  Receipt Date: 20170207
  Transmission Date: 20170428
  Serious: Yes (Death, Other)
  Sender: FDA-Public Use
  Company Number: US-MYLANLABS-2017M1007240

PATIENT

DRUGS (1)
  1. ZIPRASIDONE. [Suspect]
     Active Substance: ZIPRASIDONE
     Indication: SCHIZOPHRENIA
     Dosage: 160 MG/DAY
     Route: 048

REACTIONS (1)
  - Completed suicide [Fatal]
